FAERS Safety Report 21818763 (Version 1)
Quarter: 2023Q1

REPORT INFORMATION
  Report Type: Spontaneous
  Country: US (occurrence: None)
  Receive Date: 20230104
  Receipt Date: 20230104
  Transmission Date: 20230417
  Serious: Yes (Disabling)
  Sender: FDA-Public Use
  Company Number: None

PATIENT
  Age: 55 Year
  Sex: Female
  Weight: 56.25 kg

DRUGS (3)
  1. KEYTRUDA [Suspect]
     Active Substance: PEMBROLIZUMAB
     Indication: Triple negative breast cancer
     Dates: start: 20210901, end: 20220413
  2. METHOTREXATE [Concomitant]
     Active Substance: METHOTREXATE
  3. NP Thryoid [Concomitant]

REACTIONS (3)
  - Inflammation [None]
  - Therapy cessation [None]
  - Myositis [None]

NARRATIVE: CASE EVENT DATE: 20220413
